FAERS Safety Report 11122350 (Version 1)
Quarter: 2015Q2

REPORT INFORMATION
  Report Type: Spontaneous
  Country: US (occurrence: US)
  Receive Date: 20150519
  Receipt Date: 20150519
  Transmission Date: 20150821
  Serious: No
  Sender: FDA-Public Use
  Company Number: US-BAYER-2015-217021

PATIENT
  Age: 66 Year
  Sex: Male
  Weight: 136.5 kg

DRUGS (2)
  1. ALEVE [Suspect]
     Active Substance: NAPROXEN SODIUM
     Indication: ANALGESIC THERAPY
     Dosage: 1 DF, Q4HR
     Route: 048
     Dates: start: 201505, end: 20150503
  2. ALEVE [Suspect]
     Active Substance: NAPROXEN SODIUM
     Indication: ANALGESIC THERAPY
     Dosage: 1 DF, Q6HR
     Route: 048
     Dates: start: 201505, end: 20150503

REACTIONS (3)
  - Extra dose administered [None]
  - Hypoaesthesia [Recovered/Resolved]
  - Cardiovascular disorder [Recovered/Resolved]

NARRATIVE: CASE EVENT DATE: 201505
